FAERS Safety Report 24408571 (Version 4)
Quarter: 2025Q2

REPORT INFORMATION
  Report Type: Spontaneous
  Country: US (occurrence: US)
  Receive Date: 20241007
  Receipt Date: 20250415
  Transmission Date: 20250717
  Serious: No
  Sender: KARYOPHARM THERAPEUTICS
  Company Number: US-KARYOPHARM-2024KPT001577

PATIENT

DRUGS (22)
  1. XPOVIO [Suspect]
     Active Substance: SELINEXOR
     Indication: Plasma cell myeloma
     Route: 048
     Dates: start: 20240917
  2. XPOVIO [Suspect]
     Active Substance: SELINEXOR
     Route: 048
     Dates: start: 20250331
  3. ACYCLOVIR [Concomitant]
     Active Substance: ACYCLOVIR
  4. ALLOPURINOL [Concomitant]
     Active Substance: ALLOPURINOL
  5. AMLODIPINE [Concomitant]
     Active Substance: AMLODIPINE BESYLATE
  6. ASPIRIN [Concomitant]
     Active Substance: ASPIRIN
  7. BACTRIM [Concomitant]
     Active Substance: SULFAMETHOXAZOLE\TRIMETHOPRIM
  8. CIPRO [Concomitant]
     Active Substance: CIPROFLOXACIN HYDROCHLORIDE
  9. DEXAMETHASONE [Concomitant]
     Active Substance: DEXAMETHASONE
  10. DARZALEX [Concomitant]
     Active Substance: DARATUMUMAB
  11. GABAPENTIN [Concomitant]
     Active Substance: GABAPENTIN
  12. HYDROCHLOROTHIAZIDE [Concomitant]
     Active Substance: HYDROCHLOROTHIAZIDE
  13. LEVAQUIN [Concomitant]
     Active Substance: LEVOFLOXACIN
  14. LOVENOX [Concomitant]
     Active Substance: ENOXAPARIN SODIUM
  15. MEDROL [Concomitant]
     Active Substance: METHYLPREDNISOLONE
  16. METOPROLOL [Concomitant]
     Active Substance: METOPROLOL
  17. METRONIDAZOLE [Concomitant]
     Active Substance: METRONIDAZOLE
  18. OLANZAPINE [Concomitant]
     Active Substance: OLANZAPINE
  19. PENICILLIN G [Concomitant]
     Active Substance: PENICILLIN G
  20. PROTONIX [Concomitant]
     Active Substance: PANTOPRAZOLE SODIUM
  21. VELCADE [Concomitant]
     Active Substance: BORTEZOMIB
  22. KYPROLIS [Concomitant]
     Active Substance: CARFILZOMIB

REACTIONS (6)
  - Illness [Unknown]
  - Nausea [Not Recovered/Not Resolved]
  - Fatigue [Unknown]
  - Constipation [Unknown]
  - Bronchitis [Unknown]
  - Drug ineffective [Unknown]

NARRATIVE: CASE EVENT DATE: 20240101
